APPROVED DRUG PRODUCT: LEVOMILNACIPRAN HYDROCHLORIDE
Active Ingredient: LEVOMILNACIPRAN HYDROCHLORIDE
Strength: EQ 80MG BASE
Dosage Form/Route: CAPSULE, EXTENDED RELEASE;ORAL
Application: A210771 | Product #003 | TE Code: AB
Applicant: PRINSTON PHARMACEUTICAL INC
Approved: Mar 20, 2023 | RLD: No | RS: No | Type: RX